FAERS Safety Report 24871445 (Version 1)
Quarter: 2025Q1

REPORT INFORMATION
  Report Type: Spontaneous
  Country: GB (occurrence: GB)
  Receive Date: 20250122
  Receipt Date: 20250122
  Transmission Date: 20250408
  Serious: Yes (Other)
  Sender: ROCHE
  Company Number: GB-ROCHE-10000185465

PATIENT
  Sex: Female

DRUGS (3)
  1. VABYSMO [Suspect]
     Active Substance: FARICIMAB-SVOA
     Indication: Diabetic retinal oedema
     Route: 065
     Dates: start: 202402
  2. LUCENTIS [Suspect]
     Active Substance: RANIBIZUMAB
     Indication: Diabetic retinal oedema
     Route: 065
     Dates: start: 202012
  3. EYLEA [Concomitant]
     Active Substance: AFLIBERCEPT
     Dates: start: 202207

REACTIONS (1)
  - Vitreous haemorrhage [Unknown]
